FAERS Safety Report 7304923-5 (Version None)
Quarter: 2011Q1

REPORT INFORMATION
  Report Type: 
  Country: None (occurrence: None)
  Receive Date: 20110222
  Receipt Date: 20110216
  Transmission Date: 20110831
  Serious: Yes (Death, Disabling)
  Sender: FDA-Public Use
  Company Number: JP-ASTELLAS-2011JP000422

PATIENT
  Sex: Male
  Weight: 45.8 kg

DRUGS (12)
  1. ZYLORIC [Concomitant]
     Dosage: 100 MG, BID
     Route: 048
     Dates: start: 20100716
  2. FAMOTIDINE [Concomitant]
     Dosage: 20 MG, BID
     Route: 048
     Dates: start: 20100716
  3. BACTRIM [Concomitant]
     Dosage: 1 DF, UID/QD
     Route: 048
     Dates: start: 20100716
  4. PROGRAF [Suspect]
     Dosage: 2 MG, UID/QD
     Route: 048
     Dates: start: 20100723, end: 20100726
  5. ITRIZOLE [Concomitant]
     Dosage: 100 MG, UID/QD
     Route: 048
     Dates: start: 20100716
  6. PREDNISOLONE [Concomitant]
     Indication: CHRONIC GRAFT VERSUS HOST DISEASE
     Dosage: 10 MG, UID/QD
     Route: 048
     Dates: start: 20100716
  7. FOLIAMIN [Concomitant]
     Dosage: 5 MG, TID
     Route: 048
     Dates: start: 20100722
  8. PROGRAF [Suspect]
     Dosage: 2 MG, UID/QD
     Route: 048
     Dates: start: 20100802, end: 20100805
  9. PROGRAF [Suspect]
     Indication: CHRONIC GRAFT VERSUS HOST DISEASE
     Dosage: 0.5 MG, UID/QD
     Route: 048
     Dates: start: 20100716, end: 20100720
  10. PROGRAF [Suspect]
     Dosage: 1 MG, UID/QD
     Route: 048
     Dates: start: 20100721, end: 20100722
  11. PROGRAF [Suspect]
     Dosage: 3 MG, UID/QD
     Route: 048
     Dates: start: 20100727, end: 20100801
  12. MAXIPIME [Concomitant]
     Indication: ENTEROCOLITIS
     Dosage: 1 G, BID
     Route: 042
     Dates: start: 20100718, end: 20100730

REACTIONS (2)
  - RENAL IMPAIRMENT [None]
  - LARGE INTESTINE CARCINOMA [None]
